FAERS Safety Report 7105066-6 (Version None)
Quarter: 2010Q4

REPORT INFORMATION
  Report Type: 
  Country: None (occurrence: None)
  Receive Date: 20101116
  Receipt Date: 20101105
  Transmission Date: 20110411
  Serious: Yes (Hospitalization)
  Sender: FDA-Public Use
  Company Number: US-NOVOPROD-316697

PATIENT
  Sex: Female
  Weight: 120.18 kg

DRUGS (10)
  1. LEVEMIR [Suspect]
     Indication: TYPE 2 DIABETES MELLITUS
     Dosage: 15 IU, QD
     Route: 058
     Dates: start: 20090301, end: 20101001
  2. LEVEMIR [Suspect]
     Dosage: 25 IU, QD
     Route: 058
     Dates: start: 20101001, end: 20101001
  3. APIDRA [Suspect]
     Indication: TYPE 2 DIABETES MELLITUS
     Dosage: 5 IU, BID
     Dates: start: 20090301, end: 20101001
  4. PLAVIX [Concomitant]
     Indication: PRODUCT USED FOR UNKNOWN INDICATION
     Dosage: 75 MG, UNK
     Dates: end: 20101001
  5. AMLODIPINE [Concomitant]
     Indication: HYPERTENSION
     Dosage: 10 MG, UNK
     Dates: end: 20101001
  6. METOPROLOL [Concomitant]
     Indication: HYPERTENSION
     Dosage: 50 MG, BID
     Dates: end: 20101001
  7. ASPIRIN [Concomitant]
     Indication: PRODUCT USED FOR UNKNOWN INDICATION
     Dosage: 325 MG, UNK
     Dates: end: 20101001
  8. SIMVASTATIN [Concomitant]
     Indication: BLOOD CHOLESTEROL INCREASED
     Dosage: 40 MG, UNK
     Dates: end: 20101001
  9. NITROGLYCERIN [Concomitant]
     Indication: PRODUCT USED FOR UNKNOWN INDICATION
     Dosage: 0.4 MG, PRN
     Dates: end: 20101001
  10. LISINOPRIL [Concomitant]
     Indication: HYPERTENSION
     Dosage: 40 MG, UNK
     Dates: end: 20101001

REACTIONS (7)
  - BLOOD GLUCOSE INCREASED [None]
  - DRUG TOLERANCE INCREASED [None]
  - ERUCTATION [None]
  - MYOCARDIAL INFARCTION [None]
  - NAUSEA [None]
  - SALIVARY HYPERSECRETION [None]
  - STRESS [None]
